FAERS Safety Report 21097178 (Version 1)
Quarter: 2022Q3

REPORT INFORMATION
  Report Type: Spontaneous
  Country: US (occurrence: US)
  Receive Date: 20220719
  Receipt Date: 20220719
  Transmission Date: 20221026
  Serious: No
  Sender: FDA-Public Use
  Company Number: US-BRACCO-2022US00209

PATIENT
  Age: 77 Year
  Sex: Male

DRUGS (1)
  1. AXUMIN [Suspect]
     Active Substance: FLUCICLOVINE F-18
     Indication: Positron emission tomogram
     Dosage: 10.1 MCI, SINGLE
     Route: 042
     Dates: start: 20211207, end: 20211207

REACTIONS (2)
  - Injection site extravasation [Unknown]
  - Therapeutic product effect decreased [Unknown]

NARRATIVE: CASE EVENT DATE: 20211207
